FAERS Safety Report 7071182-0 (Version None)
Quarter: 2010Q4

REPORT INFORMATION
  Report Type: 
  Country: None (occurrence: None)
  Receive Date: 20101029
  Receipt Date: 20101018
  Transmission Date: 20110411
  Serious: Yes (Other)
  Sender: FDA-Public Use
  Company Number: US-JNJFOC-20101005016

PATIENT
  Sex: Female

DRUGS (13)
  1. REMICADE [Suspect]
     Indication: RHEUMATOID ARTHRITIS
     Route: 042
  2. MEDROL [Suspect]
     Indication: PRODUCT USED FOR UNKNOWN INDICATION
  3. FOLIC ACID [Concomitant]
  4. TRAMADOL HCL [Concomitant]
     Indication: PAIN
  5. LEXAPRO [Concomitant]
  6. METHOTREXATE [Concomitant]
  7. CELEBREX [Concomitant]
  8. DIOVAN HCT [Concomitant]
  9. NEXIUM [Concomitant]
  10. METOPROLOL [Concomitant]
  11. SIMVASTATIN [Concomitant]
  12. VITAMIN TAB [Concomitant]
  13. CITRACAL PLUS [Concomitant]

REACTIONS (1)
  - WEIGHT INCREASED [None]
